FAERS Safety Report 7769446-8 (Version None)
Quarter: 2011Q3

REPORT INFORMATION
  Report Type: 
  Country: None (occurrence: None)
  Receive Date: 20110922
  Receipt Date: 20100830
  Transmission Date: 20111222
  Serious: No
  Sender: FDA-Public Use
  Company Number: US-ASTRAZENECA-2010SE40693

PATIENT
  Age: 46 Year
  Sex: Female

DRUGS (1)
  1. SEROQUEL [Suspect]
     Indication: WERNICKE-KORSAKOFF SYNDROME
     Route: 048

REACTIONS (5)
  - NIGHTMARE [None]
  - WEIGHT INCREASED [None]
  - CONFUSIONAL STATE [None]
  - MEMORY IMPAIRMENT [None]
  - ABNORMAL DREAMS [None]
